FAERS Safety Report 7150456-9 (Version None)
Quarter: 2010Q4

REPORT INFORMATION
  Report Type: 
  Country: None (occurrence: None)
  Receive Date: 20101210
  Receipt Date: 20101202
  Transmission Date: 20110411
  Serious: Yes (Hospitalization)
  Sender: FDA-Public Use
  Company Number: PHHY2010US82348

PATIENT
  Age: 20 Year
  Sex: Female

DRUGS (1)
  1. TOBI [Suspect]
     Indication: CYSTIC FIBROSIS
     Dosage: 300 MG BID, 28 DAYS ON THEN 28 DAYS OFF
     Dates: start: 20091007

REACTIONS (1)
  - LUNG INFECTION [None]
